FAERS Safety Report 5229815-7 (Version None)
Quarter: 2007Q1

REPORT INFORMATION
  Report Type: 
  Country: None (occurrence: None)
  Receive Date: 20070206
  Receipt Date: 20060627
  Transmission Date: 20070707
  Serious: No
  Sender: FDA-Public Use
  Company Number: US-GLAXOSMITHKLINE-A0519866A

PATIENT
  Sex: Female

DRUGS (3)
  1. PAXIL [Suspect]
     Indication: DEPRESSION
     Route: 048
     Dates: start: 20010501
  2. MULTI-VITAMIN [Concomitant]
  3. FOLIC ACID [Concomitant]

REACTIONS (11)
  - ANXIETY [None]
  - BALANCE DISORDER [None]
  - DIZZINESS [None]
  - DRUG WITHDRAWAL SYNDROME [None]
  - DYSPNOEA [None]
  - FATIGUE [None]
  - MOOD SWINGS [None]
  - NAUSEA [None]
  - SEXUAL DYSFUNCTION [None]
  - TREMOR [None]
  - VERTIGO [None]
